FAERS Safety Report 9579151 (Version 2)
Quarter: 2013Q4

REPORT INFORMATION
  Report Type: Spontaneous
  Country: US (occurrence: US)
  Receive Date: 20131001
  Receipt Date: 20131018
  Transmission Date: 20140711
  Serious: No
  Sender: FDA-Public Use
  Company Number: US-009507513-1309USA010096

PATIENT
  Age: 68 Year
  Sex: Female

DRUGS (6)
  1. PROVENTIL [Suspect]
     Indication: ASTHMA
     Dosage: 2 PUFFS IN AM AND 2 PUFFS IN PM
     Route: 055
     Dates: start: 2003
  2. DIGOXIN [Concomitant]
  3. ATENOLOL [Concomitant]
  4. AMLODIPINE [Concomitant]
  5. METFORMIN [Concomitant]
  6. ATROVENT [Concomitant]
     Route: 055

REACTIONS (5)
  - Wheezing [Not Recovered/Not Resolved]
  - Drug dose omission [Unknown]
  - Product quality issue [Unknown]
  - Palpitations [Unknown]
  - Rash macular [Unknown]
